FAERS Safety Report 18175647 (Version 1)
Quarter: 2020Q3

REPORT INFORMATION
  Report Type: Report from Study
  Country: DE (occurrence: DE)
  Receive Date: 20200820
  Receipt Date: 20200820
  Transmission Date: 20201104
  Serious: Yes (Hospitalization)
  Sender: FDA-Public Use
  Company Number: ALCN2017DE003334

PATIENT
  Age: 60 Year
  Sex: Male

DRUGS (16)
  1. BROLUCIZUMAB. [Suspect]
     Active Substance: BROLUCIZUMAB
     Indication: NEOVASCULAR AGE-RELATED MACULAR DEGENERATION
     Dosage: 6 MG, UNK
     Route: 031
     Dates: start: 20160415, end: 20160415
  2. BROLUCIZUMAB. [Suspect]
     Active Substance: BROLUCIZUMAB
     Dosage: 6 MG, UNK
     Route: 031
     Dates: start: 20160609, end: 20160609
  3. BROLUCIZUMAB. [Suspect]
     Active Substance: BROLUCIZUMAB
     Dosage: NO TREATMENT
     Route: 031
     Dates: start: 20160804, end: 20160804
  4. BROLUCIZUMAB. [Suspect]
     Active Substance: BROLUCIZUMAB
     Dosage: 6 MG, UNK
     Route: 031
     Dates: start: 20160901, end: 20160901
  5. BROLUCIZUMAB. [Suspect]
     Active Substance: BROLUCIZUMAB
     Dosage: 6 MG, UNK
     Route: 031
     Dates: start: 20161129, end: 20161129
  6. BROLUCIZUMAB. [Suspect]
     Active Substance: BROLUCIZUMAB
     Dosage: 6 MG, UNK
     Route: 031
     Dates: start: 20170216, end: 20170216
  7. BROLUCIZUMAB. [Suspect]
     Active Substance: BROLUCIZUMAB
     Dosage: NO TREATMENT
     Route: 031
     Dates: start: 20170413, end: 20170413
  8. BROLUCIZUMAB. [Suspect]
     Active Substance: BROLUCIZUMAB
     Dosage: 6 MG, UNK
     Route: 031
     Dates: start: 20160511, end: 20160511
  9. BROLUCIZUMAB. [Suspect]
     Active Substance: BROLUCIZUMAB
     Dosage: NO TREATMENT
     Route: 031
     Dates: start: 20160929, end: 20160929
  10. BROLUCIZUMAB. [Suspect]
     Active Substance: BROLUCIZUMAB
     Dosage: NO TREATMENT
     Route: 031
     Dates: start: 20170119, end: 20170119
  11. CANDECOR [Concomitant]
     Active Substance: CANDESARTAN CILEXETIL
     Indication: HYPERTENSION
     Dosage: UNK
     Route: 048
     Dates: start: 2002
  12. BROLUCIZUMAB. [Suspect]
     Active Substance: BROLUCIZUMAB
     Dosage: NO TREATMENT
     Route: 031
     Dates: start: 20161103, end: 20161103
  13. BROLUCIZUMAB. [Suspect]
     Active Substance: BROLUCIZUMAB
     Dosage: NO TREATMENT
     Route: 031
     Dates: start: 20161222, end: 20161222
  14. TRUSOPT S [Concomitant]
     Indication: INTRAOCULAR PRESSURE INCREASED
     Dosage: UNK
     Route: 047
     Dates: start: 20160513, end: 20160524
  15. BROLUCIZUMAB. [Suspect]
     Active Substance: BROLUCIZUMAB
     Dosage: NO TREATMENT
     Route: 031
     Dates: start: 20170315, end: 20170315
  16. OMEP [Concomitant]
     Active Substance: OMEPRAZOLE
     Indication: DYSPEPSIA
     Dosage: UNK
     Route: 048
     Dates: start: 2009, end: 20160919

REACTIONS (2)
  - Retinal tear [Recovered/Resolved with Sequelae]
  - Retinal detachment [Recovered/Resolved]

NARRATIVE: CASE EVENT DATE: 20170422
